FAERS Safety Report 22081244 (Version 2)
Quarter: 2023Q1

REPORT INFORMATION
  Report Type: Spontaneous
  Country: DE (occurrence: DE)
  Receive Date: 20230309
  Receipt Date: 20230322
  Transmission Date: 20230417
  Serious: Yes (Other)
  Sender: FDA-Public Use
  Company Number: DE-TEVA-2023-DE-2863358

PATIENT
  Age: 83 Year
  Sex: Female

DRUGS (1)
  1. METHOTREXATE [Suspect]
     Active Substance: METHOTREXATE
     Indication: Rheumatoid arthritis
     Route: 065

REACTIONS (3)
  - Folate deficiency [Unknown]
  - Toxicity to various agents [Unknown]
  - Anaemia folate deficiency [Unknown]
